FAERS Safety Report 5591083-4 (Version None)
Quarter: 2008Q1

REPORT INFORMATION
  Report Type: 
  Country: None (occurrence: None)
  Receive Date: 20080115
  Receipt Date: 20080107
  Transmission Date: 20080703
  Serious: Yes (Hospitalization, Disabling, Other)
  Sender: FDA-Public Use
  Company Number: PHEH2007US15623

PATIENT
  Age: 83 Year
  Sex: Male

DRUGS (3)
  1. EXELON PATCH [Suspect]
     Indication: DEMENTIA ALZHEIMER'S TYPE
     Dosage: 4.6 MG, BID
     Route: 062
     Dates: start: 20071101, end: 20071205
  2. EXELON PATCH [Suspect]
     Dosage: 4.6 MG/DAY, QD
     Route: 062
     Dates: start: 20070101, end: 20071205
  3. NAMENDA [Concomitant]
     Indication: DEMENTIA ALZHEIMER'S TYPE

REACTIONS (12)
  - ABNORMAL BEHAVIOUR [None]
  - ACCIDENTAL OVERDOSE [None]
  - CEREBROVASCULAR ACCIDENT [None]
  - CONFUSIONAL STATE [None]
  - DELIRIUM [None]
  - DEMENTIA [None]
  - DISORIENTATION [None]
  - DRUG ADMINISTRATION ERROR [None]
  - EXCORIATION [None]
  - FALL [None]
  - MEMORY IMPAIRMENT [None]
  - WALKING DISABILITY [None]
